FAERS Safety Report 21731695 (Version 2)
Quarter: 2023Q2

REPORT INFORMATION
  Report Type: Spontaneous
  Country: JP (occurrence: JP)
  Receive Date: 20221215
  Receipt Date: 20230503
  Transmission Date: 20230722
  Serious: No
  Sender: FDA-Public Use
  Company Number: JP-ALK-ABELLO A/S-2022AA004212

PATIENT

DRUGS (2)
  1. MITICURE [Suspect]
     Active Substance: DERMATOPHAGOIDES FARINAE\DERMATOPHAGOIDES PTERONYSSINUS
     Indication: Product used for unknown indication
     Dosage: 10000 JAU
     Route: 060
     Dates: start: 20221025, end: 20221031
  2. MITICURE [Suspect]
     Active Substance: DERMATOPHAGOIDES FARINAE\DERMATOPHAGOIDES PTERONYSSINUS
     Dosage: 3300 JAU
     Route: 060
     Dates: start: 20221018, end: 20221024

REACTIONS (1)
  - Gastroenteritis eosinophilic [Not Recovered/Not Resolved]

NARRATIVE: CASE EVENT DATE: 20221027
